FAERS Safety Report 7872309-0 (Version None)
Quarter: 2011Q4

REPORT INFORMATION
  Report Type: 
  Country: None (occurrence: None)
  Receive Date: 20111030
  Receipt Date: 20110317
  Transmission Date: 20120403
  Serious: No
  Sender: FDA-Public Use
  Company Number: US-AMGEN-USASP2011014789

PATIENT
  Age: 49 Year
  Sex: Female

DRUGS (1)
  1. ENBREL [Suspect]
     Indication: ANKYLOSING SPONDYLITIS
     Dates: start: 20110115, end: 20110308

REACTIONS (8)
  - CHEST PAIN [None]
  - OROPHARYNGEAL PAIN [None]
  - PAINFUL RESPIRATION [None]
  - INJECTION SITE PAIN [None]
  - CONTUSION [None]
  - HEADACHE [None]
  - PYREXIA [None]
  - CHILLS [None]
